FAERS Safety Report 22210504 (Version 3)
Quarter: 2023Q2

REPORT INFORMATION
  Report Type: Spontaneous
  Country: CN (occurrence: CN)
  Receive Date: 20230414
  Receipt Date: 20230420
  Transmission Date: 20230722
  Serious: Yes (Life-Threatening, Hospitalization, Other)
  Sender: FDA-Public Use
  Company Number: CN-JNJFOC-20230418237

PATIENT
  Age: 35 Year
  Sex: Female

DRUGS (6)
  1. INVEGA SUSTENNA [Suspect]
     Active Substance: PALIPERIDONE PALMITATE
     Indication: Schizophrenia
     Dosage: PRODUCTION DATE: 24/MAR/2023
     Route: 030
     Dates: start: 20230317
  2. INVEGA SUSTENNA [Suspect]
     Active Substance: PALIPERIDONE PALMITATE
  3. INVEGA SUSTENNA [Suspect]
     Active Substance: PALIPERIDONE PALMITATE
  4. ALANINE [Suspect]
     Active Substance: ALANINE
     Indication: Product used for unknown indication
     Route: 065
  5. INVEGA [Concomitant]
     Active Substance: PALIPERIDONE
     Dosage: AILANNING (NON- JNJ PRODUCT INVEGA), 3.00 MG/TABLET X 60 TABLETS; 6.00 MG, PO, QD
     Dates: start: 2022
  6. INVEGA [Concomitant]
     Active Substance: PALIPERIDONE
     Dates: start: 202302

REACTIONS (5)
  - Coma [Not Recovered/Not Resolved]
  - Neuroleptic malignant syndrome [Not Recovered/Not Resolved]
  - Pneumonia [Unknown]
  - Central nervous system infection [Unknown]
  - Near death experience [Unknown]

NARRATIVE: CASE EVENT DATE: 20230401
